FAERS Safety Report 15036715 (Version 1)
Quarter: 2018Q2

REPORT INFORMATION
  Report Type: Spontaneous
  Country: US (occurrence: US)
  Receive Date: 20180530
  Receipt Date: 20180530
  Transmission Date: 20180711
  Serious: No
  Sender: FDA-Public Use
  Company Number: None

PATIENT
  Age: 88 Year
  Sex: Female
  Weight: 58.97 kg

DRUGS (10)
  1. ROSUVASTATIN CALCIUM 10MG TABLETS [Suspect]
     Active Substance: ROSUVASTATIN
     Indication: LOW DENSITY LIPOPROTEIN INCREASED
     Route: 048
     Dates: start: 20180122, end: 20180219
  2. AMBIEN [Concomitant]
     Active Substance: ZOLPIDEM TARTRATE
  3. HYDACORTISONE CREAM [Concomitant]
  4. PEPCID [Concomitant]
     Active Substance: FAMOTIDINE
  5. LOSARTAN. [Concomitant]
     Active Substance: LOSARTAN
  6. LATANAPROST H.S. [Concomitant]
  7. TUMERIC [Concomitant]
     Active Substance: HERBALS\TURMERIC
  8. AMLODIPINE [Concomitant]
     Active Substance: AMLODIPINE BESYLATE
  9. DORZOLAMIDE/TIMOLOL [Concomitant]
     Active Substance: DORZOLAMIDE\TIMOLOL
  10. EXCEDRIN [Concomitant]
     Active Substance: ACETAMINOPHEN\ASPIRIN\CAFFEINE

REACTIONS (4)
  - Constipation [None]
  - Muscle disorder [None]
  - Ileus paralytic [None]
  - Dysuria [None]

NARRATIVE: CASE EVENT DATE: 20180122
